FAERS Safety Report 7315440-0 (Version None)
Quarter: 2011Q1

REPORT INFORMATION
  Report Type: 
  Country: None (occurrence: None)
  Receive Date: 20110225
  Receipt Date: 20091104
  Transmission Date: 20110831
  Serious: Yes (Hospitalization, Disabling)
  Sender: FDA-Public Use
  Company Number: B0702222A

PATIENT
  Age: 22 Year
  Sex: Female

DRUGS (4)
  1. ZONISAMIDE [Suspect]
     Dosage: 200MG PER DAY
     Route: 065
     Dates: start: 20070101
  2. OXCARBAZEPINE [Suspect]
     Dosage: 1650MG PER DAY
     Route: 065
     Dates: start: 20050401
  3. LEVETIRACETAM [Suspect]
     Dosage: 2000MG PER DAY
     Route: 065
     Dates: start: 20050201, end: 20050401
  4. LAMOTRIGINE [Suspect]
     Dosage: 400MG PER DAY
     Route: 065
     Dates: start: 20040101

REACTIONS (6)
  - AUTOMATISM EPILEPTIC [None]
  - CONVULSION [None]
  - DYSARTHRIA [None]
  - PSYCHOMOTOR RETARDATION [None]
  - PARTIAL SEIZURES WITH SECONDARY GENERALISATION [None]
  - DEPRESSION [None]
